FAERS Safety Report 5673332-7 (Version None)
Quarter: 2008Q1

REPORT INFORMATION
  Report Type: 
  Country: None (occurrence: None)
  Receive Date: 20080319
  Receipt Date: 20080311
  Transmission Date: 20080703
  Serious: Yes (Hospitalization)
  Sender: FDA-Public Use
  Company Number: GB-ROCHE-552582

PATIENT
  Age: 76 Year
  Sex: Male
  Weight: 120 kg

DRUGS (9)
  1. ORLISTAT [Suspect]
     Indication: OBESITY
     Route: 048
     Dates: start: 20070803
  2. PREGABALIN [Concomitant]
     Route: 048
  3. SIMVASTATIN [Concomitant]
     Route: 048
  4. BISOPROLOL FUMARATE [Concomitant]
     Indication: HYPERTENSION
     Route: 048
  5. BUMETANIDE [Concomitant]
     Route: 048
  6. AMIODARONE HCL [Concomitant]
     Route: 048
  7. CARBIMAZOLE [Concomitant]
     Indication: HYPERTHYROIDISM
     Route: 048
  8. HUMULIN R [Concomitant]
     Dosage: 32 UNITS MANE (IN THE MORNING) AND 10 UNITS AT NIGHT
     Route: 048
  9. ADCAL [Concomitant]
     Indication: UNEVALUABLE EVENT
     Route: 048

REACTIONS (2)
  - INFECTED SKIN ULCER [None]
  - JAUNDICE [None]
